FAERS Safety Report 11088373 (Version 3)
Quarter: 2015Q3

REPORT INFORMATION
  Report Type: Report from Study
  Country: CA (occurrence: CA)
  Receive Date: 20150504
  Receipt Date: 20150720
  Transmission Date: 20151125
  Serious: Yes (Death, Other)
  Sender: FDA-Public Use
  Company Number: PHHY2014CA157691

PATIENT
  Age: 80 Year
  Sex: Female

DRUGS (3)
  1. SANDOSTATIN [Suspect]
     Active Substance: OCTREOTIDE ACETATE
     Indication: RECTAL CANCER METASTATIC
     Dosage: 50 UG, TID
     Route: 058
     Dates: start: 201411, end: 20141210
  2. MONOCOR [Concomitant]
     Active Substance: BISOPROLOL FUMARATE
     Indication: PRODUCT USED FOR UNKNOWN INDICATION
     Dosage: 10 MG, QD
     Route: 065
  3. SANDOSTATIN LAR DEPOT [Suspect]
     Active Substance: OCTREOTIDE ACETATE
     Indication: RECTAL CANCER METASTATIC
     Dosage: 10 MG, QMO
     Route: 030
     Dates: start: 20141126, end: 20150619

REACTIONS (9)
  - Body temperature decreased [Unknown]
  - Frequent bowel movements [Unknown]
  - Malignant neoplasm progression [Fatal]
  - Fatigue [Unknown]
  - Dizziness [Recovering/Resolving]
  - Off label use [Unknown]
  - Blood pressure diastolic decreased [Unknown]
  - Blood magnesium decreased [Recovered/Resolved]
  - Pollakiuria [Unknown]

NARRATIVE: CASE EVENT DATE: 201411
